FAERS Safety Report 4728397-3 (Version None)
Quarter: 2005Q3

REPORT INFORMATION
  Report Type: 
  Country: None (occurrence: None)
  Receive Date: 20050729
  Receipt Date: 20040628
  Transmission Date: 20060218
  Serious: No
  Sender: FDA-Public Use
  Company Number: US-GLAXOSMITHKLINE-A0516225A

PATIENT
  Age: 8 Week
  Sex: Male

DRUGS (7)
  1. ZANTAC [Suspect]
     Indication: IRRITABILITY
     Dosage: 1CC TWICE PER DAY
     Route: 048
     Dates: start: 20040301, end: 20040601
  2. NUTRAMIGEN [Suspect]
     Route: 048
  3. NO CONCURRENT MEDICATION [Concomitant]
  4. BENADRYL [Concomitant]
  5. ZYRTEC [Concomitant]
  6. CUTIVATE [Concomitant]
  7. SINGULAIR [Concomitant]

REACTIONS (1)
  - URTICARIA [None]
